FAERS Safety Report 26060137 (Version 1)
Quarter: 2025Q4

REPORT INFORMATION
  Report Type: Spontaneous
  Country: US (occurrence: None)
  Receive Date: 20251117
  Receipt Date: 20251117
  Transmission Date: 20260117
  Serious: No
  Sender: FDA-CTU
  Company Number: None

PATIENT
  Age: 74 Year
  Sex: Female

DRUGS (1)
  1. JAKAFI [Suspect]
     Active Substance: RUXOLITINIB
     Indication: Polycythaemia vera
     Dosage: FREQUENCY : DAILY;?
     Route: 048
     Dates: start: 20190321

REACTIONS (2)
  - Dementia [None]
  - Therapy interrupted [None]

NARRATIVE: CASE EVENT DATE: 20251117
